FAERS Safety Report 24965584 (Version 1)
Quarter: 2025Q1

REPORT INFORMATION
  Report Type: Spontaneous
  Country: US (occurrence: US)
  Receive Date: 20250213
  Receipt Date: 20250213
  Transmission Date: 20250409
  Serious: No
  Sender: Kenvue
  Company Number: US-KENVUE-20250111134

PATIENT
  Sex: Female

DRUGS (1)
  1. TYLENOL 8 HR ARTHRITIS PAIN [Suspect]
     Active Substance: ACETAMINOPHEN
     Indication: Product used for unknown indication
     Dosage: 2 FOR BREAKFAST AND 2 FOR DINNER, AND I ACCIDENTALLY TOOK 2 CAPLETS AT BEDTIME
     Route: 065

REACTIONS (2)
  - Extra dose administered [Unknown]
  - Rash pruritic [Unknown]
